FAERS Safety Report 7210612-8 (Version None)
Quarter: 2011Q1

REPORT INFORMATION
  Report Type: 
  Country: None (occurrence: None)
  Receive Date: 20110105
  Receipt Date: 20101229
  Transmission Date: 20110831
  Serious: Yes (Other)
  Sender: FDA-Public Use
  Company Number: PHHY2010US70480

PATIENT
  Sex: Female

DRUGS (27)
  1. BACLOFEN [Concomitant]
     Dosage: UNK
  2. IMITREX [Concomitant]
     Dosage: UNK
  3. ADVAIR [Concomitant]
     Dosage: UNK
  4. BUSPAR [Concomitant]
     Dosage: UNK
  5. LYRICA [Concomitant]
     Dosage: UNK
  6. METOPROLOL TARTRATE [Concomitant]
     Dosage: UNK
  7. ABILIFY [Concomitant]
     Dosage: UNK
  8. TRILEPTO [Concomitant]
     Dosage: UNK
  9. PROTONIX [Concomitant]
     Dosage: UNK
  10. AMPYRA [Concomitant]
  11. DEPAKOTE [Concomitant]
     Dosage: UNK
  12. ZOPINOX [Concomitant]
     Dosage: UNK
  13. CLARITIN [Concomitant]
     Dosage: UNK
  14. NOVOLOG [Concomitant]
     Dosage: UNK
  15. PAXIL [Concomitant]
     Dosage: UNK
  16. LASIX [Concomitant]
     Dosage: UNK
  17. VITAMIN B [Concomitant]
     Dosage: UNK
  18. TRICOR [Concomitant]
     Dosage: UNK
  19. EXTAVIA [Suspect]
     Indication: MULTIPLE SCLEROSIS
     Dosage: 0.25 MG, QOD
     Route: 058
     Dates: start: 20100716
  20. ALBUTEROL [Concomitant]
     Dosage: UNK
  21. LEVOXYL [Concomitant]
     Dosage: UNK
  22. ASPIRIN [Concomitant]
     Dosage: UNK
  23. ACETAMINOPHEN [Concomitant]
  24. TOPRAL [Concomitant]
     Dosage: UNK
  25. SINGULAIR [Concomitant]
     Dosage: UNK
  26. NORVASC [Concomitant]
     Dosage: UNK
  27. LISINOPRIL AND HYDROCHLOROTHIAZIDE [Concomitant]
     Dosage: UNK

REACTIONS (9)
  - SPINAL CORD DISORDER [None]
  - PAIN IN EXTREMITY [None]
  - NAUSEA [None]
  - NERVE INJURY [None]
  - VERTIGO [None]
  - MALAISE [None]
  - HYPOAESTHESIA [None]
  - STRESS [None]
  - VOMITING [None]
